FAERS Safety Report 4964289-2 (Version None)
Quarter: 2006Q2

REPORT INFORMATION
  Report Type: 
  Country: None (occurrence: None)
  Receive Date: 20060406
  Receipt Date: 20060327
  Transmission Date: 20061013
  Serious: Yes (Congenital Anomaly)
  Sender: FDA-Public Use
  Company Number: US-BRACCO-BDI-008072

PATIENT
  Sex: Female
  Weight: 3.95 kg

DRUGS (1)
  1. PROHANCE                           /01180801/ [Suspect]
     Route: 050
     Dates: start: 20050921, end: 20050921

REACTIONS (9)
  - ATRIAL SEPTAL DEFECT [None]
  - CAESAREAN SECTION [None]
  - CARDIAC MURMUR [None]
  - DRUG EXPOSURE DURING PREGNANCY [None]
  - HYPOGLYCAEMIA [None]
  - HYPOGLYCAEMIA NEONATAL [None]
  - NEONATAL DISORDER [None]
  - NEONATAL RESPIRATORY DISTRESS SYNDROME [None]
  - RESPIRATORY DISTRESS [None]
